FAERS Safety Report 23835185 (Version 1)
Quarter: 2024Q2

REPORT INFORMATION
  Report Type: Spontaneous
  Country: GB (occurrence: GB)
  Receive Date: 20240509
  Receipt Date: 20240509
  Transmission Date: 20240715
  Serious: Yes (Other)
  Sender: FDA-Public Use
  Company Number: GB-Vifor (International) Inc.-VIT-2024-03861

PATIENT
  Age: 60 Year
  Sex: Male
  Weight: 91.6 kg

DRUGS (5)
  1. TAVNEOS [Suspect]
     Active Substance: AVACOPAN
     Indication: Anti-neutrophil cytoplasmic antibody positive vasculitis
     Dosage: 30 MILLIGRAM, QD
     Route: 048
     Dates: start: 20231012
  2. RITUXIMAB [Concomitant]
     Active Substance: RITUXIMAB
     Indication: Anti-neutrophil cytoplasmic antibody positive vasculitis
     Dosage: 1000 MILLIGRAM
     Route: 065
     Dates: start: 20231013, end: 20231013
  3. RITUXIMAB [Concomitant]
     Active Substance: RITUXIMAB
     Dosage: 1000 MILLIGRAM
     Route: 065
     Dates: start: 20231027, end: 20231027
  4. PREDNISOLONE [Concomitant]
     Active Substance: PREDNISOLONE
     Indication: Anti-neutrophil cytoplasmic antibody positive vasculitis
     Dosage: COMPLETION OF PLANNED COURSE
     Route: 048
     Dates: start: 20231012, end: 20231019
  5. PREDNISOLONE [Concomitant]
     Active Substance: PREDNISOLONE
     Dosage: COMPLETION OF PLANNED COURSE
     Route: 048
     Dates: start: 20231019, end: 20231026

REACTIONS (2)
  - Lower respiratory tract infection [Recovered/Resolved]
  - Nasopharyngitis [Recovering/Resolving]

NARRATIVE: CASE EVENT DATE: 20240102
